FAERS Safety Report 14411166 (Version 1)
Quarter: 2018Q1

REPORT INFORMATION
  Report Type: Spontaneous
  Country: NL (occurrence: NL)
  Receive Date: 20180119
  Receipt Date: 20180119
  Transmission Date: 20180509
  Serious: Yes (Hospitalization)
  Sender: FDA-Public Use
  Company Number: NL-TEVA-2018-NL-846514

PATIENT
  Age: 12 Month
  Sex: Female
  Weight: 49 kg

DRUGS (1)
  1. VORICONAZOLE FILM-COATED TABLETS, 200 MG [Suspect]
     Active Substance: VORICONAZOLE
     Indication: ASPERGILLUS INFECTION
     Dosage: 2 TIMES A DAY 350 MG
     Route: 065
     Dates: start: 2016

REACTIONS (3)
  - Hyperhidrosis [Unknown]
  - Hot flush [Unknown]
  - Erythema [Unknown]

NARRATIVE: CASE EVENT DATE: 2017
